FAERS Safety Report 19246734 (Version 1)
Quarter: 2021Q2

REPORT INFORMATION
  Report Type: Spontaneous
  Country: US (occurrence: US)
  Receive Date: 20210512
  Receipt Date: 20210512
  Transmission Date: 20210717
  Serious: No
  Sender: FDA-Public Use
  Company Number: None

PATIENT
  Sex: Female
  Weight: 57.15 kg

DRUGS (4)
  1. CAPECITABINE 500 MG TAB [Suspect]
     Active Substance: CAPECITABINE
     Route: 048
     Dates: start: 20210312
  2. OXYDOCONE HCL 5 MG TAB [Concomitant]
  3. ATIVAN 1 MG TAB [Concomitant]
  4. IMODIUM A?D 2 MG TAB [Concomitant]

REACTIONS (5)
  - Pain in extremity [None]
  - Aspartate aminotransferase increased [None]
  - Therapy cessation [None]
  - Hepatic enzyme increased [None]
  - Alanine aminotransferase increased [None]
